FAERS Safety Report 16197273 (Version 1)
Quarter: 2019Q2

REPORT INFORMATION
  Report Type: Spontaneous
  Country: US (occurrence: US)
  Receive Date: 20190413
  Receipt Date: 20190413
  Transmission Date: 20190711
  Serious: No
  Sender: FDA-Public Use
  Company Number: None

PATIENT
  Age: 15 Year
  Sex: Male
  Weight: 58.5 kg

DRUGS (3)
  1. KEFLEX [Suspect]
     Active Substance: CEPHALEXIN
     Indication: LOCALISED INFECTION
     Dosage: ?          QUANTITY:1 CAPSULE(S);?
     Route: 048
     Dates: start: 20190327, end: 20190404
  2. KEFLEX [Suspect]
     Active Substance: CEPHALEXIN
     Indication: WOUND INFECTION
     Dosage: ?          QUANTITY:1 CAPSULE(S);?
     Route: 048
     Dates: start: 20190327, end: 20190404
  3. KEFLEX [Suspect]
     Active Substance: CEPHALEXIN
     Indication: FRACTURE INFECTION
     Dosage: ?          QUANTITY:1 CAPSULE(S);?
     Route: 048
     Dates: start: 20190327, end: 20190404

REACTIONS (5)
  - Dry skin [None]
  - Adverse drug reaction [None]
  - Pruritus [None]
  - Skin exfoliation [None]
  - Generalised erythema [None]

NARRATIVE: CASE EVENT DATE: 20190329
